FAERS Safety Report 5204009-X (Version None)
Quarter: 2007Q1

REPORT INFORMATION
  Report Type: 
  Country: None (occurrence: None)
  Receive Date: 20070110
  Receipt Date: 20061229
  Transmission Date: 20070707
  Serious: Yes (Death, Hospitalization, Other)
  Sender: FDA-Public Use
  Company Number: US-PFIZER INC-2005037325

PATIENT
  Sex: Male
  Weight: 99.8 kg

DRUGS (4)
  1. CELECOXIB [Suspect]
     Indication: ARTHRITIS
     Route: 048
  2. BEXTRA [Suspect]
     Indication: ARTHRALGIA
     Route: 048
     Dates: start: 20030506, end: 20040520
  3. LIPITOR [Concomitant]
     Route: 048
  4. ACCUPRIL [Concomitant]
     Route: 048

REACTIONS (2)
  - CHEST DISCOMFORT [None]
  - MYOCARDIAL INFARCTION [None]
